FAERS Safety Report 7209728-1 (Version None)
Quarter: 2011Q1

REPORT INFORMATION
  Report Type: 
  Country: None (occurrence: None)
  Receive Date: 20110104
  Receipt Date: 20101230
  Transmission Date: 20110831
  Serious: Yes (Other)
  Sender: FDA-Public Use
  Company Number: US-AMGEN-KDL443855

PATIENT

DRUGS (11)
  1. CALTRATE [Concomitant]
  2. COUMADIN [Concomitant]
  3. DEMADEX [Concomitant]
  4. CENTRUM SILVER [Concomitant]
  5. PROLIA [Suspect]
     Indication: OSTEOPOROSIS POSTMENOPAUSAL
     Dosage: 60 MG, Q6MO
     Dates: start: 20101006
  6. CALTRATE                           /00108001/ [Concomitant]
  7. PROLIA [Suspect]
     Dates: start: 20101006
  8. CENTRUM SILVER                     /01292501/ [Concomitant]
  9. METOLAZONE [Concomitant]
     Dosage: UNK
  10. COUMADIN [Concomitant]
  11. DEMADEX [Concomitant]

REACTIONS (7)
  - NASAL CONGESTION [None]
  - FATIGUE [None]
  - SWELLING FACE [None]
  - GINGIVAL BLEEDING [None]
  - ARTHROPATHY [None]
  - BONE PAIN [None]
  - SNEEZING [None]
